FAERS Safety Report 6545408-3 (Version None)
Quarter: 2010Q1

REPORT INFORMATION
  Report Type: 
  Country: None (occurrence: None)
  Receive Date: 20100121
  Receipt Date: 20100113
  Transmission Date: 20100710
  Serious: Yes (Death)
  Sender: FDA-Public Use
  Company Number: US-JNJFOC-20100106949

PATIENT
  Age: 52 Year
  Sex: Female

DRUGS (3)
  1. CYCLOBENZAPRINE [Suspect]
     Indication: DRUG USE FOR UNKNOWN INDICATION
  2. NORTRIPTYLINE [Suspect]
     Indication: DRUG USE FOR UNKNOWN INDICATION
  3. HYDROCODONE [Suspect]
     Indication: DRUG USE FOR UNKNOWN INDICATION

REACTIONS (2)
  - COMPLETED SUICIDE [None]
  - DRUG TOXICITY [None]
